FAERS Safety Report 24159836 (Version 2)
Quarter: 2024Q3

REPORT INFORMATION
  Report Type: Report from Study
  Country: ZA (occurrence: ZA)
  Receive Date: 20240731
  Receipt Date: 20240830
  Transmission Date: 20241017
  Serious: Yes (Hospitalization, Other)
  Sender: ABBVIE
  Company Number: ZA-ABBOTT-2024A-1385072

PATIENT
  Age: 48 Year
  Sex: Male

DRUGS (21)
  1. FENOFIBRATE [Suspect]
     Active Substance: FENOFIBRATE
     Indication: Blood cholesterol abnormal
     Dosage: 200 MG TAKE ONE DAILY
     Route: 048
  2. Stilpane [Concomitant]
     Indication: Pain
     Dosage: DRINK TWO CAPSULES EVERY SIX TO EIGHT HOURS
     Route: 048
  3. CLOBAZAM [Concomitant]
     Active Substance: CLOBAZAM
     Indication: Anxiety
     Dosage: 10 MG TAKE ONE TABLET THREE TIMES A DAY
     Route: 048
  4. VENLAFAXINE HYDROCHLORIDE [Concomitant]
     Active Substance: VENLAFAXINE HYDROCHLORIDE
     Indication: Depression
     Dosage: 150 MG TAKE ONE CAPSULE IN THE MORNING, XR
     Route: 048
  5. CLOBAZAM [Concomitant]
     Active Substance: CLOBAZAM
     Indication: Anxiety
     Dosage: 10 MG TAKE ONE TABLET THREE TIMES A DAY?10 ADCO
     Route: 048
  6. METFORMIN HYDROCHLORIDE [Concomitant]
     Active Substance: METFORMIN HYDROCHLORIDE
     Indication: Diabetes mellitus
     Dosage: 500 MG TAKE ONE TABLET DAILY
     Route: 048
  7. LAMOTRIGINE [Concomitant]
     Active Substance: LAMOTRIGINE
     Indication: Epilepsy
     Dosage: 25 MG TAKE HALF A TABLET FOR TWO WEEKS
     Route: 048
  8. LAMOTRIGINE [Concomitant]
     Active Substance: LAMOTRIGINE
     Indication: Epilepsy
     Dosage: 25 MG TAKE HALF A TABLET FOR TWO WEEKS
     Route: 048
  9. LAMOTRIGINE [Concomitant]
     Active Substance: LAMOTRIGINE
     Indication: Epilepsy
     Dosage: 100 MG TAKE ONE TABLET DAILY
     Route: 048
  10. ZOLPIDEM TARTRATE [Concomitant]
     Active Substance: ZOLPIDEM TARTRATE
     Indication: Sleep disorder
     Dosage: 12.5 MG TAKE ONE TABLET AT NIGHT, MR
     Route: 048
  11. VALPROIC ACID [Concomitant]
     Active Substance: VALPROIC ACID
     Indication: Epilepsy
     Dosage: 500 MG TAKE TWO TABLETS TWICE A DAY
     Route: 048
  12. K fenak [Concomitant]
     Indication: Product used for unknown indication
     Dosage: 50 MG AS DIRECTED, OTC
     Route: 048
  13. ADCO DOL [Concomitant]
     Indication: Product used for unknown indication
     Dosage: TIME INTERVAL: AS NECESSARY
     Route: 048
  14. Lipogen [Concomitant]
     Indication: Blood cholesterol abnormal
     Dosage: 20 MG TAKE ONE TABLET AT NIGHT
     Route: 048
  15. METFORMIN [Concomitant]
     Active Substance: METFORMIN HYDROCHLORIDE
     Indication: Diabetes mellitus
     Dosage: 500 MG TAKE ONE TABLET DAILY
     Route: 048
  16. Novapraz xr [Concomitant]
     Indication: Anxiety
     Dosage: 0.5 MG TAKE TWO TABLETS TWICE A DAY
     Route: 048
  17. LIDOCAINE [Concomitant]
     Active Substance: LIDOCAINE
     Indication: Local anaesthesia
     Dosage: 5 % APPLY ONE PATCH EVERY TWELVE HOURS
     Route: 061
  18. Valeptic cr [Concomitant]
     Indication: Epilepsy
     Dosage: 500 MG TAKE TWO TABLETS TWICE A DAY
     Route: 048
  19. ALLOPURINOL [Concomitant]
     Active Substance: ALLOPURINOL
     Indication: Gout
     Dosage: 300 MG TAKE ONE TABLET DAILY
     Route: 048
  20. ZOLPIDEM [Concomitant]
     Active Substance: ZOLPIDEM TARTRATE
     Indication: Sleep disorder
     Dosage: 12.5 MG TAKE ONE TABLET AT NIGHT
     Route: 048
  21. ENALAPRIL MALEATE [Concomitant]
     Active Substance: ENALAPRIL MALEATE
     Indication: Hypertension
     Dosage: 10 MG TAKE ONE TABLET DAILY
     Route: 048

REACTIONS (5)
  - Seizure [Not Recovered/Not Resolved]
  - Rib fracture [Unknown]
  - Fall [Unknown]
  - Epilepsy [Unknown]
  - Anxiety [Unknown]
